FAERS Safety Report 8969625 (Version 1)
Quarter: 2012Q4

REPORT INFORMATION
  Report Type: 
  Country: GB (occurrence: GB)
  Receive Date: 20121218
  Receipt Date: 20121218
  Transmission Date: 20130627
  Serious: Yes (Other)
  Sender: FDA-Public Use
  Company Number: PHFR2012GB006129

PATIENT
  Age: 49 Year
  Sex: Male

DRUGS (8)
  1. CLOZARIL [Suspect]
     Indication: SCHIZOPHRENIA
     Dosage: UNK UKN, UNK
     Route: 048
     Dates: start: 20070821
  2. CLOZARIL [Suspect]
     Dosage: 400 mg, UNK
     Route: 048
  3. VENLAFAXINE [Concomitant]
     Indication: DEPRESSIVE SYMPTOM
     Dosage: 150 mg, BID
     Route: 048
  4. LITHIUM CARBONATE [Concomitant]
     Indication: AFFECTIVE DISORDER
     Dosage: 500 mg, UNK
  5. BISOPROLOL [Concomitant]
     Indication: AFFECTIVE DISORDER
     Dosage: 2.5 mg, UNK
     Route: 048
  6. OMEPRAZOLE [Concomitant]
     Indication: GENERAL PHYSICAL HEALTH DETERIORATION
     Dosage: 40 mg, UNK
     Route: 048
  7. ISOSORBIDE MONONITRATE [Concomitant]
     Dosage: 30 mg, BID
     Route: 048
  8. SERETIDE [Concomitant]
     Dosage: 2 DF,(2 puffs) BID

REACTIONS (5)
  - Chronic obstructive pulmonary disease [Unknown]
  - Productive cough [Unknown]
  - Lower respiratory tract infection [Unknown]
  - Neutrophil count increased [Unknown]
  - White blood cell count increased [Unknown]
